FAERS Safety Report 16567850 (Version 3)
Quarter: 2019Q3

REPORT INFORMATION
  Report Type: Report from Study
  Country: DE (occurrence: DE)
  Receive Date: 20190712
  Receipt Date: 20190819
  Transmission Date: 20191004
  Serious: Yes (Death, Hospitalization, Other)
  Sender: FDA-Public Use
  Company Number: DE-INCYTE CORPORATION-2019IN006746

PATIENT

DRUGS (21)
  1. LYRICA [Concomitant]
     Active Substance: PREGABALIN
     Indication: PAIN
     Dosage: 150 MG, QD
     Route: 065
     Dates: start: 2013, end: 20150311
  2. ASPIRIN. [Concomitant]
     Active Substance: ASPIRIN
     Indication: BLOOD DISORDER
     Dosage: 400 MG, EVERY 4 DAYS
     Route: 065
     Dates: start: 2013
  3. TORASEMIDE [Concomitant]
     Active Substance: TORSEMIDE
     Indication: OEDEMA PERIPHERAL
     Dosage: 20 MG, QD
     Route: 065
     Dates: start: 201905
  4. INCB018424 [Suspect]
     Active Substance: RUXOLITINIB
     Dosage: 45 MG, PER DAY
     Route: 048
     Dates: start: 20190121
  5. ALLOPURINOL. [Concomitant]
     Active Substance: ALLOPURINOL
     Indication: BLOOD URIC ACID INCREASED
     Dosage: 300 MG, QD
     Route: 065
     Dates: start: 201310
  6. INCB018424 [Suspect]
     Active Substance: RUXOLITINIB
     Dosage: 40 MG, PER DAY
     Route: 048
     Dates: start: 20180904
  7. ASPIRIN. [Concomitant]
     Active Substance: ASPIRIN
     Dosage: 100 OT, QD
     Route: 065
  8. TAMSULOSIN [Concomitant]
     Active Substance: TAMSULOSIN
     Indication: NOCTURIA
     Dosage: 0.4 MG, QD
     Route: 065
     Dates: start: 20170828
  9. INCB018424 [Suspect]
     Active Substance: RUXOLITINIB
     Indication: PRIMARY MYELOFIBROSIS
     Dosage: 35 MG, PER DAY
     Route: 048
     Dates: start: 20160602
  10. LYRICA [Concomitant]
     Active Substance: PREGABALIN
     Dosage: 50 OT, QD
     Route: 065
     Dates: start: 20150311, end: 20170504
  11. LYRICA [Concomitant]
     Active Substance: PREGABALIN
     Dosage: 75 OT, QD
     Route: 065
     Dates: start: 20170505
  12. PANTOPRAZOLE [Concomitant]
     Active Substance: PANTOPRAZOLE
     Indication: PRODUCT USED FOR UNKNOWN INDICATION
     Dosage: 20 MG, QD
     Route: 065
     Dates: start: 2013
  13. FERRO SANOL [Concomitant]
     Active Substance: FERROUS GLYCINE SULFATE
     Indication: ANAEMIA
     Dosage: 100 OT, QD
     Route: 065
  14. DOXEPIN [Concomitant]
     Active Substance: DOXEPIN
     Indication: PRODUCT USED FOR UNKNOWN INDICATION
     Dosage: 50 OT, QD
     Route: 065
     Dates: start: 2013, end: 201707
  15. UROREC [Concomitant]
     Active Substance: SILODOSIN
     Indication: PRODUCT USED FOR UNKNOWN INDICATION
     Dosage: 8 MG, QD
     Route: 065
  16. BISOPROLOL [Concomitant]
     Active Substance: BISOPROLOL
     Indication: PRODUCT USED FOR UNKNOWN INDICATION
     Dosage: 1.25 MG, QD
     Route: 065
     Dates: start: 2013
  17. NOVALGIN [Concomitant]
     Indication: PAIN
     Dosage: 500 OT, QD
     Route: 065
  18. MAGNESIUM [Concomitant]
     Active Substance: MAGNESIUM
     Indication: MUSCLE SPASMS
     Dosage: UNK UNK, QD
     Route: 065
     Dates: start: 20171026
  19. INCB018424 [Suspect]
     Active Substance: RUXOLITINIB
     Dosage: 30 MG, PER DAY
     Route: 048
     Dates: start: 20171027
  20. DEKRISTOL [Concomitant]
     Active Substance: CHOLECALCIFEROL
     Indication: PRODUCT USED FOR UNKNOWN INDICATION
     Dosage: 20.000 IU, Q2W
     Route: 065
  21. HYDROXYUREA. [Concomitant]
     Active Substance: HYDROXYUREA
     Indication: MYELOFIBROSIS
     Dosage: 500 MG, EVERY OTHER DAY
     Route: 065
     Dates: start: 20190506

REACTIONS (12)
  - Mean platelet volume increased [Unknown]
  - Basophil count increased [Unknown]
  - Blood glucose increased [Unknown]
  - Metamyelocyte count increased [Unknown]
  - Myelocyte count increased [Unknown]
  - Gamma-glutamyltransferase increased [Unknown]
  - Neutrophil count increased [Unknown]
  - International normalised ratio increased [Unknown]
  - Lymphocyte count decreased [Unknown]
  - Monocyte count increased [Unknown]
  - Haematoma [Fatal]
  - Eosinophil count increased [Unknown]

NARRATIVE: CASE EVENT DATE: 20190514
